FAERS Safety Report 21562862 (Version 1)
Quarter: 2022Q4

REPORT INFORMATION
  Report Type: Spontaneous
  Country: US (occurrence: None)
  Receive Date: 20221104
  Receipt Date: 20221104
  Transmission Date: 20230113
  Serious: No
  Sender: FDA-Public Use
  Company Number: None

PATIENT
  Sex: Male

DRUGS (2)
  1. ZARXIO [Suspect]
     Active Substance: FILGRASTIM-SNDZ
     Indication: Agranulocytosis
     Dosage: 480MCG SUBCUTANEOUS? ?DAILY, ON DAYS 1,2,3 OF A 21 DAY CYCLE. ?
     Route: 058
     Dates: start: 20220504
  2. ZARXIO [Suspect]
     Active Substance: FILGRASTIM-SNDZ
     Indication: Neuroendocrine carcinoma of the skin

REACTIONS (2)
  - Therapy non-responder [None]
  - Drug ineffective [None]
